FAERS Safety Report 25820364 (Version 1)
Quarter: 2025Q3

REPORT INFORMATION
  Report Type: Other
  Country: JP (occurrence: JP)
  Receive Date: 20250919
  Receipt Date: 20250919
  Transmission Date: 20251020
  Serious: Yes (Hospitalization, Other)
  Sender: ANI
  Company Number: JP-ANIPHARMA-030571

PATIENT
  Age: 33 Year
  Sex: Female

DRUGS (7)
  1. CYCLOPHOSPHAMIDE [Suspect]
     Active Substance: CYCLOPHOSPHAMIDE
     Indication: Metastatic choriocarcinoma
  2. ETOPOSIDE [Concomitant]
     Active Substance: ETOPOSIDE
     Indication: Metastatic choriocarcinoma
  3. METHOTREXATE [Concomitant]
     Active Substance: METHOTREXATE
     Indication: Metastatic choriocarcinoma
  4. ACTINOMYCIN D [Concomitant]
     Active Substance: DACTINOMYCIN
     Indication: Metastatic choriocarcinoma
  5. VINCRISTINE [Concomitant]
     Active Substance: VINCRISTINE
     Indication: Metastatic choriocarcinoma
  6. METHOTREXATE [Concomitant]
     Active Substance: METHOTREXATE
     Indication: Metastatic choriocarcinoma
  7. ETOPOSIDE [Concomitant]
     Active Substance: ETOPOSIDE
     Indication: Metastatic choriocarcinoma

REACTIONS (2)
  - Liver carcinoma ruptured [Recovered/Resolved]
  - Shock haemorrhagic [Recovered/Resolved]
